FAERS Safety Report 10337172 (Version 1)
Quarter: 2014Q3

REPORT INFORMATION
  Report Type: Report from Study
  Country: CA (occurrence: CA)
  Receive Date: 20140723
  Receipt Date: 20140723
  Transmission Date: 20150326
  Serious: Yes (Other)
  Sender: FDA-Public Use
  Company Number: CA-ABBVIE-14P-028-1261605-00

PATIENT
  Sex: Male

DRUGS (2)
  1. HUMIRA [Suspect]
     Active Substance: ADALIMUMAB
     Indication: PSORIASIS
     Route: 058
     Dates: start: 20111201
  2. CODEINE [Concomitant]
     Active Substance: CODEINE
     Indication: PSORIASIS

REACTIONS (6)
  - Sinus disorder [Recovering/Resolving]
  - Pharyngeal oedema [Recovering/Resolving]
  - Oropharyngeal pain [Recovering/Resolving]
  - Seasonal allergy [Not Recovered/Not Resolved]
  - Dyspnoea [Not Recovered/Not Resolved]
  - Throat irritation [Recovering/Resolving]

NARRATIVE: CASE EVENT DATE: 2014
